FAERS Safety Report 13565568 (Version 2)
Quarter: 2017Q2

REPORT INFORMATION
  Report Type: Spontaneous
  Country: FR (occurrence: FR)
  Receive Date: 20170519
  Receipt Date: 20170602
  Transmission Date: 20170830
  Serious: Yes (Disabling, Congenital Anomaly)
  Sender: FDA-Public Use
  Company Number: FR-ABBVIE-15P-056-1432038-00

PATIENT
  Sex: Female

DRUGS (1)
  1. DEPAKINE [Suspect]
     Active Substance: VALPROATE SODIUM
     Indication: MATERNAL EXPOSURE TIMING UNSPECIFIED
     Route: 064

REACTIONS (15)
  - Developmental delay [Unknown]
  - Nasal congestion [Unknown]
  - Speech disorder [Unknown]
  - Supraventricular tachycardia [Recovered/Resolved]
  - Learning disorder [Unknown]
  - Foetal exposure during pregnancy [Unknown]
  - Abnormal behaviour [Unknown]
  - Neonatal tachycardia [Recovered/Resolved]
  - Cognitive disorder [Unknown]
  - Scoliosis [Unknown]
  - Developmental delay [Not Recovered/Not Resolved]
  - Ear infection [Unknown]
  - Stridor [Recovered/Resolved]
  - Psychomotor skills impaired [Unknown]
  - Respiratory distress [Recovered/Resolved]

NARRATIVE: CASE EVENT DATE: 2000
